FAERS Safety Report 5454975-2 (Version None)
Quarter: 2007Q3

REPORT INFORMATION
  Report Type: 
  Country: None (occurrence: None)
  Receive Date: 20070917
  Receipt Date: 20070907
  Transmission Date: 20080115
  Serious: Yes (Other)
  Sender: FDA-Public Use
  Company Number: FR-PFIZER INC-2007075486

PATIENT
  Age: 56 Year
  Sex: Female

DRUGS (4)
  1. CADUET [Suspect]
  2. CHONDROSULF [Concomitant]
  3. MAGNESIUM SULFATE [Concomitant]
  4. TOPALGIC [Concomitant]

REACTIONS (4)
  - LOCAL SWELLING [None]
  - PYREXIA [None]
  - RASH ERYTHEMATOUS [None]
  - SWELLING FACE [None]
